FAERS Safety Report 8061730-6 (Version None)
Quarter: 2012Q1

REPORT INFORMATION
  Report Type: 
  Country: None (occurrence: None)
  Receive Date: 20120123
  Receipt Date: 20120111
  Transmission Date: 20120608
  Serious: Yes (Death, Hospitalization)
  Sender: FDA-Public Use
  Company Number: AR-BIOGENIDEC-2012BI001887

PATIENT
  Age: 19 Year
  Sex: Male

DRUGS (4)
  1. DELTISONA (METHYLPREDNISOLONE) [Concomitant]
     Route: 048
  2. LANZOPRAL (LANSOPRAZOLE) [Concomitant]
     Route: 048
  3. INSERTEC (SERTRALINE) [Concomitant]
     Route: 048
  4. AVONEX [Suspect]
     Indication: MULTIPLE SCLEROSIS
     Route: 030
     Dates: start: 20110430

REACTIONS (6)
  - DIABETIC KETOACIDOSIS [None]
  - HAEMOPTYSIS [None]
  - ARRHYTHMIA [None]
  - MULTIPLE SCLEROSIS RELAPSE [None]
  - BLOOD GLUCOSE INCREASED [None]
  - CARDIAC ARREST [None]
